FAERS Safety Report 24268955 (Version 1)
Quarter: 2024Q3

REPORT INFORMATION
  Report Type: Spontaneous
  Country: US (occurrence: US)
  Receive Date: 20240830
  Receipt Date: 20240830
  Transmission Date: 20241016
  Serious: Yes (Other)
  Sender: VERTEX
  Company Number: US-VERTEX PHARMACEUTICALS-2024-013590

PATIENT

DRUGS (1)
  1. ELEXACAFTOR\IVACAFTOR\TEZACAFTOR [Suspect]
     Active Substance: ELEXACAFTOR\IVACAFTOR\TEZACAFTOR
     Indication: Cystic fibrosis
     Dosage: UNK FREQ
     Route: 048

REACTIONS (6)
  - Overweight [Unknown]
  - Haemangioma of liver [Unknown]
  - Gallbladder mucocoele [Unknown]
  - Hydrocholecystis [Unknown]
  - Biliary colic [Recovered/Resolved]
  - Hepatic steatosis [Recovered/Resolved]
